FAERS Safety Report 15776355 (Version 1)
Quarter: 2018Q4

REPORT INFORMATION
  Report Type: Spontaneous
  Country: US (occurrence: US)
  Receive Date: 20181231
  Receipt Date: 20181231
  Transmission Date: 20190205
  Serious: Yes (Other)
  Sender: FDA-Public Use
  Company Number: US-B.I. PHARMACEUTICALS,INC./RIDGEFIELD-2018-BI-061759

PATIENT
  Sex: Female

DRUGS (1)
  1. TRADJENTA [Suspect]
     Active Substance: LINAGLIPTIN
     Indication: PRODUCT USED FOR UNKNOWN INDICATION
     Dosage: FORM STRENGTH: 5 MG; FORMULATION: TABLET?ACTION(S) TAKEN WITH PRODUCT: NOT REPORTED
     Route: 048

REACTIONS (2)
  - Haemorrhagic stroke [Unknown]
  - Tremor [Unknown]

NARRATIVE: CASE EVENT DATE: 20181119
